FAERS Safety Report 12959483 (Version 1)
Quarter: 2016Q4

REPORT INFORMATION
  Report Type: Spontaneous
  Country: US (occurrence: US)
  Receive Date: 20161118
  Receipt Date: 20161118
  Transmission Date: 20170207
  Serious: Yes (Life-Threatening, Hospitalization)
  Sender: FDA-Public Use
  Company Number: None

PATIENT
  Age: 38 Year
  Sex: Female
  Weight: 105.7 kg

DRUGS (1)
  1. DOXYCYCLINE HYCLATE. [Suspect]
     Active Substance: DOXYCYCLINE HYCLATE
     Indication: PNEUMONIA
     Route: 048
     Dates: start: 20161111, end: 20161116

REACTIONS (9)
  - Mouth swelling [None]
  - Swelling face [None]
  - Local swelling [None]
  - Headache [None]
  - Rash [None]
  - Lip swelling [None]
  - Urticaria [None]
  - Tachycardia [None]
  - Throat tightness [None]

NARRATIVE: CASE EVENT DATE: 20161117
